FAERS Safety Report 5352588-4 (Version None)
Quarter: 2007Q2

REPORT INFORMATION
  Report Type: 
  Country: None (occurrence: None)
  Receive Date: 20070611
  Receipt Date: 20070531
  Transmission Date: 20071010
  Serious: Yes (Other)
  Sender: FDA-Public Use
  Company Number: CH-SANOFI-SYNTHELABO-A01200705861

PATIENT
  Age: 40 Year
  Sex: Female

DRUGS (3)
  1. PREDNISONE TAB [Suspect]
     Indication: POLYARTHRITIS
     Route: 048
     Dates: start: 20060601
  2. IMUREK [Suspect]
     Indication: POLYARTHRITIS
     Route: 048
     Dates: start: 20060601
  3. PLAQUENIL [Suspect]
     Indication: POLYARTHRITIS
     Route: 048

REACTIONS (2)
  - ABORTION SPONTANEOUS INCOMPLETE [None]
  - DRUG EXPOSURE DURING PREGNANCY [None]
